FAERS Safety Report 7968634 (Version 3)
Quarter: 2012Q4

REPORT INFORMATION
  Report Type: 
  Country: US (occurrence: US)
  Receive Date: 20110601
  Receipt Date: 20121101
  Transmission Date: 20130627
  Serious: Yes (Life-Threatening, Hospitalization, Other)
  Sender: FDA-Public Use
  Company Number: US-PFIZER INC-2010072104

PATIENT
  Age: 50 Year
  Sex: Female
  Weight: 99 kg

DRUGS (8)
  1. CHANTIX [Suspect]
     Indication: SMOKING CESSATION THERAPY
     Dosage: 1 mg, a tablet 2x/day
     Route: 048
     Dates: start: 20070214, end: 20070401
  2. CHANTIX [Suspect]
     Indication: SMOKING CESSATION THERAPY
     Dosage: Starter pack
     Dates: start: 200902, end: 200904
  3. AVAPRO [Concomitant]
     Dosage: 150 mg, UNK
  4. DULOXETINE HYDROCHLORIDE [Concomitant]
     Dosage: 60 mg, UNK
  5. TENORETIC [Concomitant]
     Dosage: 25 mg, UNK
  6. ZIRTEC [Concomitant]
     Dosage: 10 mg, UNK
  7. SONATA [Concomitant]
     Dosage: 10 mg, UNK
  8. ATENOLOL [Concomitant]
     Indication: BLOOD PRESSURE HIGH
     Dosage: UNK
     Dates: start: 2007

REACTIONS (7)
  - Intentional overdose [Recovered/Resolved]
  - Suicide attempt [Recovered/Resolved]
  - Suicide attempt [Recovered/Resolved]
  - Depression [Not Recovered/Not Resolved]
  - Loss of consciousness [Unknown]
  - Fall [Unknown]
  - Joint injury [Unknown]
